FAERS Safety Report 8660171 (Version 3)
Quarter: 2015Q3

REPORT INFORMATION
  Report Type: Spontaneous
  Country: US (occurrence: US)
  Receive Date: 20120711
  Receipt Date: 20150827
  Transmission Date: 20151125
  Serious: Yes (Other)
  Sender: FDA-Public Use
  Company Number: US-ASTRAZENECA-2012SE45097

PATIENT
  Age: 41 Year
  Sex: Female
  Weight: 78.5 kg

DRUGS (24)
  1. HUMIRA [Suspect]
     Active Substance: ADALIMUMAB
     Indication: ANKYLOSING SPONDYLITIS
     Dosage: 40 MG SLASH 0.8 ML, TWICE A MONTH
     Route: 058
     Dates: start: 2012
  2. LASIX [Concomitant]
     Active Substance: FUROSEMIDE
     Indication: OEDEMA
     Route: 048
     Dates: start: 2004
  3. VITAMIN B6 [Concomitant]
     Active Substance: PYRIDOXINE HYDROCHLORIDE
  4. LYRICA [Concomitant]
     Active Substance: PREGABALIN
  5. FLEXERIL [Concomitant]
     Active Substance: CYCLOBENZAPRINE HYDROCHLORIDE
     Indication: ARTHRITIS
     Route: 048
     Dates: start: 2007
  6. VITAMIN D3 OTC [Concomitant]
     Indication: VITAMIN D DEFICIENCY
     Route: 048
     Dates: start: 2010
  7. SYMBICORT [Suspect]
     Active Substance: BUDESONIDE\FORMOTEROL FUMARATE DIHYDRATE
     Indication: CHRONIC OBSTRUCTIVE PULMONARY DISEASE
     Dosage: 160/4.5 MICROGRAMS, 2 PUFFS, TWICE A DAY
     Route: 055
     Dates: start: 2011
  8. SYMBICORT [Suspect]
     Active Substance: BUDESONIDE\FORMOTEROL FUMARATE DIHYDRATE
     Indication: ASTHMA
     Dosage: 160/4.5 MICROGRAMS, 2 PUFFS, TWICE A DAY
     Route: 055
     Dates: start: 2011
  9. CYMBALTA [Concomitant]
     Active Substance: DULOXETINE HYDROCHLORIDE
     Indication: FIBROMYALGIA
     Route: 048
     Dates: start: 2013
  10. CORDRAN [Concomitant]
     Active Substance: FLURANDRENOLIDE
     Indication: HEPATIC CIRRHOSIS
     Route: 061
     Dates: start: 2014
  11. BIOTIN [Concomitant]
     Active Substance: BIOTIN
  12. NEXIUM [Suspect]
     Active Substance: ESOMEPRAZOLE MAGNESIUM
     Indication: BARRETT^S OESOPHAGUS
     Route: 048
     Dates: end: 20150816
  13. NEXIUM [Suspect]
     Active Substance: ESOMEPRAZOLE MAGNESIUM
     Indication: GASTROOESOPHAGEAL REFLUX DISEASE
     Route: 048
     Dates: end: 20150816
  14. CORDRAN [Concomitant]
     Active Substance: FLURANDRENOLIDE
     Indication: HEPATIC CIRRHOSIS
     Dosage: UP TO TWICE A DAY, AS NEEDED
     Route: 061
     Dates: start: 2014
  15. CALCIUM/MAGNESIUM/ZINC [Concomitant]
  16. COMBIVENT [Concomitant]
     Active Substance: ALBUTEROL SULFATE\IPRATROPIUM BROMIDE
     Indication: CHRONIC OBSTRUCTIVE PULMONARY DISEASE
     Dosage: 20/100 MCG, 1 PUFF, UP TO 4 TIMES A DAY, AS NEEDED
     Route: 055
     Dates: start: 2011
  17. VECTICAL [Concomitant]
     Active Substance: CALCITRIOL
     Indication: HEPATIC CIRRHOSIS
     Dosage: 3 MCG/3 M, UP TO TWO TIMES A DAY, AS NEEDED
     Route: 061
     Dates: start: 2014
  18. ALLEGRA OTC [Concomitant]
     Indication: MULTIPLE ALLERGIES
     Route: 048
     Dates: start: 2006
  19. POTASSIUM [Concomitant]
     Active Substance: POTASSIUM
     Indication: HYPOKALAEMIA
     Route: 048
     Dates: start: 2010
  20. POTASSIUM [Concomitant]
     Active Substance: POTASSIUM
     Indication: HYPOKALAEMIA
     Dosage: UP TO 5 TIMES A DAY AS NEEDED.
     Route: 048
     Dates: start: 2010
  21. TRAMADOL. [Concomitant]
     Active Substance: TRAMADOL
     Indication: ARTHRITIS
     Route: 048
     Dates: start: 2007
  22. COMBIVENT [Concomitant]
     Active Substance: ALBUTEROL SULFATE\IPRATROPIUM BROMIDE
     Indication: ASTHMA
     Dosage: 20/100 MCG, 1 PUFF, UP TO 4 TIMES A DAY, AS NEEDED
     Route: 055
     Dates: start: 2011
  23. ASPIRIN. [Concomitant]
     Active Substance: ASPIRIN
  24. NEURONTIN [Concomitant]
     Active Substance: GABAPENTIN
     Indication: FIBROMYALGIA
     Route: 048
     Dates: start: 201508

REACTIONS (20)
  - Polyp [Unknown]
  - Irritable bowel syndrome [Unknown]
  - Allergy to animal [Unknown]
  - Ankylosing spondylitis [Unknown]
  - Mycotic allergy [Unknown]
  - Drug dose omission [Unknown]
  - Off label use [Unknown]
  - Vitamin D deficiency [Unknown]
  - Mitral valve prolapse [Unknown]
  - Hypokalaemia [Unknown]
  - Plantar fasciitis [Unknown]
  - Seasonal allergy [Unknown]
  - Oedema [Unknown]
  - Hepatic cirrhosis [Unknown]
  - Osteoarthritis [Unknown]
  - Carpal tunnel syndrome [Unknown]
  - Chronic obstructive pulmonary disease [Unknown]
  - Trigger finger [Unknown]
  - Intervertebral disc protrusion [Unknown]
  - Asthma [Unknown]

NARRATIVE: CASE EVENT DATE: 2002
